FAERS Safety Report 17704047 (Version 1)
Quarter: 2020Q2

REPORT INFORMATION
  Report Type: Spontaneous
  Country: US (occurrence: US)
  Receive Date: 20200423
  Receipt Date: 20200423
  Transmission Date: 20200714
  Serious: Yes (Hospitalization)
  Sender: FDA-Public Use
  Company Number: None

PATIENT
  Sex: Female

DRUGS (22)
  1. ALLEGRA-D [Concomitant]
     Active Substance: FEXOFENADINE\PSEUDOEPHEDRINE
  2. IPRATROPIUM/SOL ALBUTER [Concomitant]
  3. MONUROL [Concomitant]
     Active Substance: FOSFOMYCIN TROMETHAMINE
  4. SOLIFENACIN [Concomitant]
     Active Substance: SOLIFENACIN
  5. FUROSEMIDE. [Concomitant]
     Active Substance: FUROSEMIDE
  6. LEVOFLOXACIN. [Concomitant]
     Active Substance: LEVOFLOXACIN
  7. NITROFURANTIN [Concomitant]
     Active Substance: NITROFURANTOIN
  8. PREMARIN [Concomitant]
     Active Substance: ESTROGENS, CONJUGATED
  9. CLINDAMYCIN. [Concomitant]
     Active Substance: CLINDAMYCIN
  10. PREDNISONE. [Concomitant]
     Active Substance: PREDNISONE
  11. ZOLPIDEM [Concomitant]
     Active Substance: ZOLPIDEM TARTRATE
  12. POT CL MICRO [Concomitant]
  13. CIPROFLOXACIN. [Concomitant]
     Active Substance: CIPROFLOXACIN
  14. IBRANCE [Suspect]
     Active Substance: PALBOCICLIB
     Indication: RECTAL CANCER
     Dosage: 1 CAP QD PO ON 21D OFF 7 D
     Route: 048
     Dates: start: 20200307
  15. METOCLOPRAM [Concomitant]
     Active Substance: METOCLOPRAMIDE
  16. TAMSULOSIN [Concomitant]
     Active Substance: TAMSULOSIN
  17. TRAMADOL HCL [Concomitant]
     Active Substance: TRAMADOL HYDROCHLORIDE
  18. DOXYCYCL HYC [Concomitant]
  19. SYMBICORT [Concomitant]
     Active Substance: BUDESONIDE\FORMOTEROL FUMARATE DIHYDRATE
  20. TRAZODONE [Concomitant]
     Active Substance: TRAZODONE HYDROCHLORIDE
  21. VALACYCLOVIR [Concomitant]
     Active Substance: VALACYCLOVIR HYDROCHLORIDE
  22. VENTOLIN HFA [Concomitant]
     Active Substance: ALBUTEROL SULFATE

REACTIONS (4)
  - Pleural effusion [None]
  - Therapy interrupted [None]
  - Cardiac failure [None]
  - Pericardial effusion [None]
